FAERS Safety Report 19238947 (Version 1)
Quarter: 2021Q2

REPORT INFORMATION
  Report Type: Spontaneous
  Country: US (occurrence: US)
  Receive Date: 20210510
  Receipt Date: 20210510
  Transmission Date: 20210717
  Serious: No
  Sender: FDA-Public Use
  Company Number: US-BAYER-2021-138185

PATIENT
  Sex: Female

DRUGS (10)
  1. LIORESAL [Concomitant]
     Active Substance: BACLOFEN
  2. CYMBALTA [Concomitant]
     Active Substance: DULOXETINE HYDROCHLORIDE
  3. PEPCID AC [Concomitant]
     Active Substance: FAMOTIDINE
  4. BETASERON [Suspect]
     Active Substance: INTERFERON BETA-1B
     Indication: MULTIPLE SCLEROSIS
  5. BENTYL [Concomitant]
     Active Substance: DICYCLOMINE HYDROCHLORIDE
  6. NEURONTIN [Concomitant]
     Active Substance: GABAPENTIN
  7. CELEXA [CELECOXIB] [Concomitant]
     Active Substance: CELECOXIB
  8. SINGULAIR [Concomitant]
     Active Substance: MONTELUKAST SODIUM
  9. LIPITOR [Concomitant]
     Active Substance: ATORVASTATIN CALCIUM
  10. CELEBREX [Concomitant]
     Active Substance: CELECOXIB

REACTIONS (3)
  - Injection site reaction [Unknown]
  - Injection site pain [Unknown]
  - Injection site swelling [Unknown]
